FAERS Safety Report 19681420 (Version 1)
Quarter: 2021Q3

REPORT INFORMATION
  Report Type: Spontaneous
  Country: US (occurrence: US)
  Receive Date: 20210810
  Receipt Date: 20210810
  Transmission Date: 20211014
  Serious: No
  Sender: FDA-Public Use
  Company Number: US-IGSA-BIG0014120

PATIENT
  Sex: Female
  Weight: 60.77 kg

DRUGS (3)
  1. GAMUNEX?C [Suspect]
     Active Substance: HUMAN IMMUNOGLOBULIN G
     Indication: SELECTIVE IGA IMMUNODEFICIENCY
  2. GAMUNEX?C [Suspect]
     Active Substance: HUMAN IMMUNOGLOBULIN G
     Indication: HYPOGAMMAGLOBULINAEMIA
     Dosage: 20 GRAM SPREAD OUT OVER 7 TO 12 DAYS
     Route: 058
     Dates: start: 202011
  3. GAMUNEX?C [Suspect]
     Active Substance: HUMAN IMMUNOGLOBULIN G
     Indication: HUMORAL IMMUNE DEFECT

REACTIONS (2)
  - Injection site bruising [Not Recovered/Not Resolved]
  - Infusion site scar [Recovering/Resolving]

NARRATIVE: CASE EVENT DATE: 20210411
